FAERS Safety Report 5117998-9 (Version None)
Quarter: 2006Q3

REPORT INFORMATION
  Report Type: 
  Country: None (occurrence: None)
  Receive Date: 20060929
  Receipt Date: 20060921
  Transmission Date: 20061208
  Serious: Yes (Hospitalization)
  Sender: FDA-Public Use
  Company Number: US-JNJFOC-20060905931

PATIENT
  Sex: Male
  Weight: 86 kg

DRUGS (5)
  1. RISPERDAL [Suspect]
     Indication: DEPRESSION
     Route: 048
  2. CERTICAN [Suspect]
     Indication: HEART TRANSPLANT
  3. AZATHIOPRINE [Suspect]
     Indication: HEART TRANSPLANT
  4. DULOXETINE [Suspect]
     Indication: PAIN IN EXTREMITY
     Route: 048
  5. ALLOPURINOL [Suspect]
     Indication: GOUT
     Route: 048

REACTIONS (6)
  - CONFUSIONAL STATE [None]
  - DEHYDRATION [None]
  - DRUG LEVEL INCREASED [None]
  - MENTAL STATUS CHANGES [None]
  - RENAL FAILURE ACUTE [None]
  - RENAL FAILURE CHRONIC [None]
